FAERS Safety Report 18412831 (Version 1)
Quarter: 2020Q4

REPORT INFORMATION
  Report Type: Spontaneous
  Country: US (occurrence: US)
  Receive Date: 20201022
  Receipt Date: 20201022
  Transmission Date: 20210114
  Serious: No
  Sender: FDA-Public Use
  Company Number: US-009507513-2010USA007517

PATIENT
  Age: 25 Year
  Sex: Female
  Weight: 79.37 kg

DRUGS (2)
  1. NEXPLANON [Suspect]
     Active Substance: ETONOGESTREL
     Dosage: 1 DOSAGE FORM
     Route: 059
     Dates: start: 20201019
  2. NEXPLANON [Suspect]
     Active Substance: ETONOGESTREL
     Dosage: 68 MILLIGRAM
     Route: 059
     Dates: start: 20201019, end: 20201019

REACTIONS (1)
  - Complication of device insertion [Recovered/Resolved]

NARRATIVE: CASE EVENT DATE: 20201019
